FAERS Safety Report 7657058-6 (Version None)
Quarter: 2011Q3

REPORT INFORMATION
  Report Type: 
  Country: None (occurrence: None)
  Receive Date: 20110804
  Receipt Date: 20110803
  Transmission Date: 20111222
  Serious: Yes (Other)
  Sender: FDA-Public Use
  Company Number: US-ABBOTT-11P-163-0728612-00

PATIENT
  Sex: Female

DRUGS (1)
  1. HUMIRA [Suspect]
     Indication: UVEITIS
     Dates: start: 20110501

REACTIONS (3)
  - UVEITIS [None]
  - HERNIA [None]
  - ABDOMINAL PAIN [None]
